FAERS Safety Report 15286629 (Version 1)
Quarter: 2018Q3

REPORT INFORMATION
  Report Type: Spontaneous
  Country: US (occurrence: US)
  Receive Date: 20180816
  Receipt Date: 20180816
  Transmission Date: 20181010
  Serious: No
  Sender: FDA-Public Use
  Company Number: US-AMGEN-USASP2018065320

PATIENT
  Sex: Female

DRUGS (1)
  1. PARSABIV [Suspect]
     Active Substance: ETELCALCETIDE HYDROCHLORIDE
     Indication: HYPERPARATHYROIDISM SECONDARY
     Dosage: 2.5 MG, UNK
     Route: 065
     Dates: start: 20180509

REACTIONS (5)
  - Rash [Unknown]
  - Nausea [Unknown]
  - Refusal of treatment by patient [Unknown]
  - Underdose [Unknown]
  - Vomiting [Unknown]

NARRATIVE: CASE EVENT DATE: 20180509
